FAERS Safety Report 9402326 (Version 2)
Quarter: 2013Q4

REPORT INFORMATION
  Report Type: Report from Study
  Country: DE (occurrence: DE)
  Receive Date: 20130716
  Receipt Date: 20131023
  Transmission Date: 20140711
  Serious: Yes (Hospitalization, Other)
  Sender: FDA-Public Use
  Company Number: DE-CELGENEUS-062-C5013-13070461

PATIENT
  Age: 74 Year
  Sex: Male

DRUGS (6)
  1. CC-5013 [Suspect]
     Indication: PLASMA CELL MYELOMA
     Dosage: 25 MILLIGRAM
     Route: 048
     Dates: start: 20091202
  2. CC-5013 [Suspect]
     Route: 048
     Dates: end: 20110412
  3. DEXAMETHASONE [Suspect]
     Indication: PLASMA CELL MYELOMA
     Dosage: 40 MILLIGRAM
     Route: 065
     Dates: start: 20091202
  4. DEXAMETHASONE [Suspect]
     Route: 065
     Dates: end: 20110419
  5. ASA [Concomitant]
     Indication: THROMBOSIS PROPHYLAXIS
     Dosage: 100 MILLIGRAM
     Route: 048
     Dates: start: 20111005
  6. FRAXIPARINE [Concomitant]
     Indication: THROMBOSIS PROPHYLAXIS
     Dosage: .4 MILLILITER
     Route: 058
     Dates: end: 20111004

REACTIONS (1)
  - Lung adenocarcinoma stage I [Recovered/Resolved with Sequelae]
